FAERS Safety Report 8953932 (Version 5)
Quarter: 2016Q3

REPORT INFORMATION
  Report Type: Spontaneous
  Country: JP (occurrence: JP)
  Receive Date: 20121206
  Receipt Date: 20160728
  Transmission Date: 20161109
  Serious: Yes (Death, Other)
  Sender: FDA-Public Use
  Company Number: JP-GILEAD-2012-0065811

PATIENT
  Age: 80 Year
  Sex: Male
  Weight: 60 kg

DRUGS (27)
  1. JUVELA N [Concomitant]
     Active Substance: TOCOPHERYL NICOTINATE, D-.ALPHA.
     Dosage: 100 MG, TID
  2. FEBURIC [Concomitant]
     Active Substance: FEBUXOSTAT
     Route: 048
  3. FEBURIC [Concomitant]
     Active Substance: FEBUXOSTAT
     Dosage: 40 MG, QD
     Route: 048
  4. TANATRIL [Concomitant]
     Active Substance: IMIDAPRIL
     Route: 048
  5. TANATRIL [Concomitant]
     Active Substance: IMIDAPRIL
     Route: 048
  6. BREDININ [Concomitant]
     Active Substance: MIZORIBINE
     Route: 048
  7. NORVASC [Concomitant]
     Active Substance: AMLODIPINE BESYLATE
     Route: 048
  8. FEBURIC [Concomitant]
     Active Substance: FEBUXOSTAT
     Route: 048
  9. RECALBON [Concomitant]
     Active Substance: MINODRONIC ACID
     Route: 048
  10. NORVASC [Concomitant]
     Active Substance: AMLODIPINE BESYLATE
     Route: 048
  11. AMBRISENTAN [Suspect]
     Active Substance: AMBRISENTAN
     Indication: PULMONARY HYPERTENSION
     Dosage: 5 MG, QD
     Route: 048
     Dates: start: 20120707, end: 20120713
  12. AMBRISENTAN [Suspect]
     Active Substance: AMBRISENTAN
     Dosage: 7.5 MG, QD
     Route: 048
     Dates: start: 20120714, end: 20120828
  13. FEBURIC [Concomitant]
     Active Substance: FEBUXOSTAT
     Route: 048
  14. TANATRIL [Concomitant]
     Active Substance: IMIDAPRIL
     Route: 048
  15. TANATRIL [Concomitant]
     Active Substance: IMIDAPRIL
     Route: 048
  16. NORVASC [Concomitant]
     Active Substance: AMLODIPINE BESYLATE
     Route: 048
  17. KAYEXALATE [Concomitant]
     Active Substance: SODIUM POLYSTYRENE SULFONATE
     Dosage: 1 DF, TID
  18. AMBRISENTAN [Suspect]
     Active Substance: AMBRISENTAN
     Dosage: 10 MG, QD
     Route: 048
     Dates: start: 20120829
  19. DIART [Suspect]
     Active Substance: AZOSEMIDE
     Indication: CARDIAC FAILURE
     Dosage: 30 MG, QD
     Route: 048
     Dates: start: 20121107
  20. NORVASC [Concomitant]
     Active Substance: AMLODIPINE BESYLATE
     Dosage: 2.5 MG, QD
  21. BREDININ [Concomitant]
     Active Substance: MIZORIBINE
     Route: 048
  22. BREDININ [Concomitant]
     Active Substance: MIZORIBINE
     Dosage: 150 MG, QD
     Route: 048
  23. RECALBON [Concomitant]
     Active Substance: MINODRONIC ACID
     Route: 048
  24. BREDININ [Concomitant]
     Active Substance: MIZORIBINE
     Route: 048
  25. RECALBON [Concomitant]
     Active Substance: MINODRONIC ACID
     Route: 048
  26. NORVASC [Concomitant]
     Active Substance: AMLODIPINE BESYLATE
     Dosage: 5 MG, QD
     Route: 048
  27. EPADEL                             /01682401/ [Concomitant]
     Active Substance: ICOSAPENT

REACTIONS (2)
  - Off label use [Unknown]
  - Sudden death [Fatal]

NARRATIVE: CASE EVENT DATE: 20121108
